FAERS Safety Report 18703561 (Version 1)
Quarter: 2021Q1

REPORT INFORMATION
  Report Type: Spontaneous
  Country: ES (occurrence: ES)
  Receive Date: 20210105
  Receipt Date: 20210105
  Transmission Date: 20210419
  Serious: Yes (Life-Threatening)
  Sender: FDA-Public Use
  Company Number: ES-TEVA-2020-ES-1864368

PATIENT
  Age: 61 Year
  Sex: Female
  Weight: 62 kg

DRUGS (1)
  1. PREGABALINA 75MG [Suspect]
     Active Substance: PREGABALIN
     Dosage: 75 MILLIGRAM DAILY;
     Route: 048
     Dates: start: 2020, end: 2020

REACTIONS (5)
  - Muscle spasms [Recovering/Resolving]
  - Tremor [Recovering/Resolving]
  - Lip oedema [Recovering/Resolving]
  - Paraesthesia oral [Recovering/Resolving]
  - Muscle tightness [Recovering/Resolving]

NARRATIVE: CASE EVENT DATE: 20201201
